FAERS Safety Report 7271616-2 (Version None)
Quarter: 2011Q1

REPORT INFORMATION
  Report Type: 
  Country: None (occurrence: None)
  Receive Date: 20110203
  Receipt Date: 20110120
  Transmission Date: 20110831
  Serious: Yes (Hospitalization, Other)
  Sender: FDA-Public Use
  Company Number: US-ELI_LILLY_AND_COMPANY-US201101005346

PATIENT
  Sex: Female

DRUGS (7)
  1. FORTEO [Suspect]
     Dosage: 20 UG, DAILY (1/D)
     Route: 065
     Dates: start: 20110112
  2. LISINOPRIL [Concomitant]
  3. METOPROLOL TARTRATE [Concomitant]
  4. FORTEO [Suspect]
     Indication: OSTEOPOROSIS
     Dosage: 20 UG, DAILY (1/D)
     Route: 065
     Dates: start: 20100401, end: 20110107
  5. LASIX [Concomitant]
  6. PLAVIX [Concomitant]
  7. DIGOXIN [Concomitant]

REACTIONS (4)
  - ISCHAEMIC STROKE [None]
  - UNRESPONSIVE TO STIMULI [None]
  - CEREBROVASCULAR ACCIDENT [None]
  - FALL [None]
